FAERS Safety Report 25423804 (Version 1)
Quarter: 2025Q2

REPORT INFORMATION
  Report Type: Spontaneous
  Country: US (occurrence: US)
  Receive Date: 20250611
  Receipt Date: 20250611
  Transmission Date: 20250717
  Serious: No
  Sender: PIERRE FABRE MEDICAMENT
  Company Number: US-PFM-2025-00078

PATIENT
  Age: 0 Year
  Sex: Male
  Weight: 6.95 kg

DRUGS (4)
  1. HEMANGEOL [Suspect]
     Active Substance: PROPRANOLOL HYDROCHLORIDE
     Indication: Haemangioma
     Dosage: 2.6 ML, BID (2/DAY)
     Dates: start: 20241219
  2. HEMANGEOL [Suspect]
     Active Substance: PROPRANOLOL HYDROCHLORIDE
     Route: 065
  3. Probiotic Chil [Concomitant]
     Indication: Product used for unknown indication
     Route: 065
  4. VITAMIN D [Concomitant]
     Active Substance: VITAMIN D NOS
     Indication: Product used for unknown indication
     Route: 065

REACTIONS (2)
  - Illness [Recovered/Resolved]
  - Sleep disorder [Unknown]

NARRATIVE: CASE EVENT DATE: 20241219
